FAERS Safety Report 16756687 (Version 1)
Quarter: 2019Q3

REPORT INFORMATION
  Report Type: Spontaneous
  Country: US (occurrence: US)
  Receive Date: 20190829
  Receipt Date: 20190829
  Transmission Date: 20191005
  Serious: Yes (Other)
  Sender: FDA-Public Use
  Company Number: US-ALLERGAN-1934844US

PATIENT
  Sex: Female
  Weight: 86.64 kg

DRUGS (5)
  1. NORTRIPTYLINE [Suspect]
     Active Substance: NORTRIPTYLINE
     Indication: SLEEP DISORDER
     Dosage: 25 MG, QHS, 1-2 CAPSULES AT NIGHT AS NEEDED
     Route: 048
     Dates: start: 2018
  2. LYRICA [Suspect]
     Active Substance: PREGABALIN
     Indication: PARAESTHESIA
     Dosage: 150 MG, TID
     Route: 048
  3. TOPAMAX [Suspect]
     Active Substance: TOPIRAMATE
     Indication: HEADACHE
     Dosage: 50 MG, QHS
     Route: 048
     Dates: start: 2018
  4. LYRICA [Suspect]
     Active Substance: PREGABALIN
     Indication: CARPAL TUNNEL SYNDROME
  5. NORCO [Suspect]
     Active Substance: ACETAMINOPHEN\HYDROCODONE BITARTRATE
     Indication: PAIN
     Dosage: 5-325 MG, Q6HR
     Route: 048

REACTIONS (9)
  - Malaise [Recovering/Resolving]
  - Diarrhoea [Recovered/Resolved]
  - Neuromuscular pain [Not Recovered/Not Resolved]
  - Therapy cessation [Unknown]
  - Spinal cord disorder [Not Recovered/Not Resolved]
  - Feeling abnormal [Unknown]
  - Neck surgery [Recovered/Resolved]
  - Body height decreased [Not Recovered/Not Resolved]
  - Insomnia [Unknown]

NARRATIVE: CASE EVENT DATE: 2013
